FAERS Safety Report 10693700 (Version 5)
Quarter: 2015Q3

REPORT INFORMATION
  Report Type: Spontaneous
  Country: US (occurrence: US)
  Receive Date: 20150106
  Receipt Date: 20150702
  Transmission Date: 20151125
  Serious: Yes (Congenital Anomaly, Other)
  Sender: FDA-Public Use
  Company Number: US-APOTEX-2014AP006480

PATIENT
  Age: 0 Day
  Sex: Male

DRUGS (4)
  1. PAXIL CR [Suspect]
     Active Substance: PAROXETINE HYDROCHLORIDE
     Indication: PANIC ATTACK
     Dosage: 25 MG AND 37.5 MG INTERMITTENTLY
     Route: 064
     Dates: start: 2003, end: 2004
  2. PAXIL CR [Suspect]
     Active Substance: PAROXETINE HYDROCHLORIDE
     Indication: ANXIETY
     Dosage: 12.5 MG, QD
     Route: 064
     Dates: start: 2003, end: 2004
  3. PAXIL CR [Suspect]
     Active Substance: PAROXETINE HYDROCHLORIDE
     Indication: DEPRESSION
  4. PAXIL [Suspect]
     Active Substance: PAROXETINE HYDROCHLORIDE
     Indication: PRODUCT USED FOR UNKNOWN INDICATION
     Dosage: 30 MG, QD
     Route: 064
     Dates: end: 2004

REACTIONS (5)
  - Talipes [Unknown]
  - Developmental delay [Unknown]
  - Strabismus [Unknown]
  - Knee deformity [Unknown]
  - Foetal exposure during pregnancy [Unknown]

NARRATIVE: CASE EVENT DATE: 20040107
